FAERS Safety Report 25137614 (Version 1)
Quarter: 2025Q1

REPORT INFORMATION
  Report Type: Spontaneous
  Country: GB (occurrence: GB)
  Receive Date: 20250329
  Receipt Date: 20250329
  Transmission Date: 20250408
  Serious: Yes (Disabling, Other)
  Sender: AUROBINDO
  Company Number: GB-MHRA-MED-202503151015247490-BDPZJ

PATIENT
  Age: 31 Year
  Sex: Female
  Weight: 122 kg

DRUGS (1)
  1. CITALOPRAM HYDROBROMIDE [Suspect]
     Active Substance: CITALOPRAM HYDROBROMIDE
     Indication: Product used for unknown indication
     Route: 065
     Dates: start: 2022

REACTIONS (4)
  - Myalgia [Not Recovered/Not Resolved]
  - Memory impairment [Not Recovered/Not Resolved]
  - Menstruation delayed [Not Recovered/Not Resolved]
  - Weight increased [Not Recovered/Not Resolved]

NARRATIVE: CASE EVENT DATE: 20230101
